FAERS Safety Report 22621328 (Version 4)
Quarter: 2023Q4

REPORT INFORMATION
  Report Type: Spontaneous
  Country: IN (occurrence: IN)
  Receive Date: 20230620
  Receipt Date: 20231024
  Transmission Date: 20240109
  Serious: Yes (Other)
  Sender: FDA-Public Use
  Company Number: IN-PFIZER INC-PV202300036678

PATIENT
  Age: 64 Year
  Sex: Male
  Weight: 73.2 kg

DRUGS (3)
  1. LORLATINIB [Suspect]
     Active Substance: LORLATINIB
     Indication: Non-small cell lung cancer
     Dosage: 100 MG, 1X/DAY
     Route: 048
     Dates: start: 20230204
  2. LORLATINIB [Suspect]
     Active Substance: LORLATINIB
     Dosage: 100 MG, 1X/DAY
     Route: 048
  3. ROSUVASTATIN CALCIUM [Concomitant]
     Active Substance: ROSUVASTATIN CALCIUM
     Dosage: 10MG- ONCE DAILY
     Dates: start: 20230204

REACTIONS (21)
  - Diarrhoea [Unknown]
  - Vomiting [Unknown]
  - Asthenia [Unknown]
  - Headache [Not Recovered/Not Resolved]
  - Carcinoembryonic antigen increased [Unknown]
  - Nausea [Unknown]
  - Pyrexia [Unknown]
  - Fatigue [Unknown]
  - Pericardial effusion [Unknown]
  - Low density lipoprotein increased [Unknown]
  - Blood glucose increased [Unknown]
  - Haemoglobin decreased [Unknown]
  - Platelet count decreased [Unknown]
  - Monocyte percentage increased [Unknown]
  - Red blood cell count decreased [Unknown]
  - Blood creatinine decreased [Unknown]
  - Blood magnesium decreased [Unknown]
  - Haematocrit decreased [Unknown]
  - Mean cell haemoglobin concentration decreased [Unknown]
  - Blood bilirubin unconjugated decreased [Unknown]
  - Eastern Cooperative Oncology Group performance status worsened [Unknown]

NARRATIVE: CASE EVENT DATE: 20230221
